FAERS Safety Report 7620571-1 (Version None)
Quarter: 2011Q3

REPORT INFORMATION
  Report Type: 
  Country: None (occurrence: None)
  Receive Date: 20110719
  Receipt Date: 20110705
  Transmission Date: 20111222
  Serious: Yes (Hospitalization)
  Sender: FDA-Public Use
  Company Number: NL-SANOFI-AVENTIS-2011SA044128

PATIENT
  Age: 77 Year
  Sex: Male
  Weight: 80 kg

DRUGS (9)
  1. SERETIDE [Concomitant]
     Dates: start: 20110316
  2. DRONEDARONE HCL [Suspect]
     Indication: ATRIAL FIBRILLATION
     Route: 048
     Dates: start: 20110221, end: 20110514
  3. CARVEDILOL [Concomitant]
     Dates: start: 20110321
  4. DOXYCYCLINE [Concomitant]
     Dates: start: 20110503, end: 20110513
  5. CARVEDILOL [Concomitant]
  6. ROSUVASTATIN [Concomitant]
  7. OMEPRAZOLE [Concomitant]
  8. ACENOCOUMAROL [Concomitant]
  9. BUMETANIDE [Concomitant]

REACTIONS (1)
  - VENTRICULAR TACHYCARDIA [None]
